FAERS Safety Report 15376466 (Version 1)
Quarter: 2018Q3

REPORT INFORMATION
  Report Type: Spontaneous
  Country: DE (occurrence: DE)
  Receive Date: 20180912
  Receipt Date: 20180912
  Transmission Date: 20181010
  Serious: Yes (Hospitalization)
  Sender: FDA-Public Use
  Company Number: DE-ANIPHARMA-2018-DE-000160

PATIENT
  Age: 31 Year
  Sex: Female
  Weight: 55 kg

DRUGS (8)
  1. PHENOBARBITAL. [Suspect]
     Active Substance: PHENOBARBITAL
     Route: 048
     Dates: start: 20180822, end: 20180822
  2. LEVETIRACETAM. [Suspect]
     Active Substance: LEVETIRACETAM
     Dosage: 15 TABLETS
     Route: 048
     Dates: start: 20180822, end: 20180822
  3. PIRACETAM [Suspect]
     Active Substance: PIRACETAM
     Route: 048
     Dates: start: 20180822, end: 20180822
  4. CANDESARTAN CILEXETIL. [Suspect]
     Active Substance: CANDESARTAN CILEXETIL
     Dosage: 240 MG
     Route: 048
     Dates: start: 20180822, end: 20180822
  5. DIAZEPAM. [Suspect]
     Active Substance: DIAZEPAM
     Dosage: 10 MG
     Route: 048
     Dates: start: 20180822, end: 20180822
  6. TRAMADOL HYDROCHLORIDE. [Suspect]
     Active Substance: TRAMADOL HYDROCHLORIDE
     Dosage: 1200 MG
     Route: 048
     Dates: start: 20180822, end: 20180822
  7. CLOBAZAM [Suspect]
     Active Substance: CLOBAZAM
     Route: 048
     Dates: start: 20180822, end: 20180822
  8. NEBIVOLOL. [Suspect]
     Active Substance: NEBIVOLOL
     Dosage: 75 MG
     Route: 048
     Dates: start: 20180822, end: 20180822

REACTIONS (6)
  - Overdose [Unknown]
  - Drug abuse [Unknown]
  - Agitation [Unknown]
  - Bradycardia [Unknown]
  - Fatigue [Unknown]
  - Hypotension [Unknown]

NARRATIVE: CASE EVENT DATE: 20180822
